FAERS Safety Report 15561526 (Version 1)
Quarter: 2018Q4

REPORT INFORMATION
  Report Type: Spontaneous
  Country: DE (occurrence: DE)
  Receive Date: 20181029
  Receipt Date: 20181029
  Transmission Date: 20190205
  Serious: Yes (Other)
  Sender: FDA-Public Use
  Company Number: DE-PFIZER INC-2018436802

PATIENT
  Sex: Female

DRUGS (1)
  1. AZITHROMYCIN ANHYDROUS. [Suspect]
     Active Substance: AZITHROMYCIN ANHYDROUS
     Indication: BRONCHITIS
     Route: 048
     Dates: start: 20181011, end: 20181013

REACTIONS (15)
  - Indifference [Recovered/Resolved]
  - Hallucination, visual [Recovered/Resolved]
  - Loss of personal independence in daily activities [Recovered/Resolved]
  - Impaired driving ability [Recovered/Resolved]
  - Aggression [Recovered/Resolved]
  - Muscular weakness [Not Recovered/Not Resolved]
  - Vision blurred [Not Recovered/Not Resolved]
  - Ageusia [Not Recovered/Not Resolved]
  - Sudden hearing loss [Not Recovered/Not Resolved]
  - Palpitations [Recovered/Resolved]
  - Insomnia [Recovered/Resolved]
  - Abnormal behaviour [Recovered/Resolved]
  - Dizziness [Not Recovered/Not Resolved]
  - Autophobia [Recovered/Resolved]
  - Cardiovascular disorder [Recovered/Resolved]

NARRATIVE: CASE EVENT DATE: 20181011
